FAERS Safety Report 7727371-2 (Version None)
Quarter: 2011Q3

REPORT INFORMATION
  Report Type: 
  Country: None (occurrence: None)
  Receive Date: 20110902
  Receipt Date: 20110824
  Transmission Date: 20111222
  Serious: Yes (Hospitalization, Other)
  Sender: FDA-Public Use
  Company Number: PHHY2011KR75709

PATIENT
  Age: 15 Year
  Sex: Male

DRUGS (2)
  1. BROAD-SPECTRUM ANTIBIOTICS [Suspect]
  2. VALPROIC ACID [Suspect]
     Indication: JUVENILE MYOCLONIC EPILEPSY
     Dosage: 20 MG/KG/DAY

REACTIONS (8)
  - LUNG INFILTRATION [None]
  - HAEMOPTYSIS [None]
  - DYSPNOEA [None]
  - PULMONARY ALVEOLAR HAEMORRHAGE [None]
  - RALES [None]
  - ASPIRATION [None]
  - RASH [None]
  - CONVULSION [None]
